FAERS Safety Report 5217500-7 (Version None)
Quarter: 2007Q1

REPORT INFORMATION
  Report Type: 
  Country: None (occurrence: None)
  Receive Date: 20070124
  Receipt Date: 20070118
  Transmission Date: 20070707
  Serious: Yes (Other)
  Sender: FDA-Public Use
  Company Number: 2007UW00958

PATIENT
  Age: 73 Year
  Sex: Male
  Weight: 83.5 kg

DRUGS (2)
  1. CASODEX [Suspect]
     Indication: PROSTATE CANCER
     Route: 048
     Dates: start: 20060101
  2. ZOLADEX [Suspect]
     Route: 058

REACTIONS (1)
  - DIABETES MELLITUS [None]
